FAERS Safety Report 13715878 (Version 1)
Quarter: 2017Q3

REPORT INFORMATION
  Report Type: Report from Study
  Country: CN (occurrence: CN)
  Receive Date: 20170705
  Receipt Date: 20170705
  Transmission Date: 20171127
  Serious: Yes (Death, Hospitalization)
  Sender: FDA-Public Use
  Company Number: CN-ROCHE-1958619

PATIENT

DRUGS (1)
  1. ALTEPLASE. [Suspect]
     Active Substance: ALTEPLASE
     Indication: ISCHAEMIC STROKE
     Dosage: 0.9 MG/KG (MAXIMUM DOSE WAS 90 MG), OF WHICH 10% WAS DELIVERED VIA INTRAVENOUS PUSH WITHIN 1 MIN, AN
     Route: 042

REACTIONS (4)
  - Lung infection [Fatal]
  - Cerebral infarction [Fatal]
  - Brain herniation [Fatal]
  - Respiratory failure [Fatal]
